FAERS Safety Report 4571778-1 (Version None)
Quarter: 2005Q1

REPORT INFORMATION
  Report Type: 
  Country: None (occurrence: None)
  Receive Date: 20050207
  Receipt Date: 20050131
  Transmission Date: 20050727
  Serious: Yes (Disabling)
  Sender: FDA-Public Use
  Company Number: FR-JNJFOC-20050104772

PATIENT
  Age: 71 Year
  Sex: Male
  Weight: 88 kg

DRUGS (2)
  1. DURAGESIC [Suspect]
     Indication: PAIN
     Route: 062
  2. UNSPECIFIED DIURETIC [Concomitant]
     Route: 065

REACTIONS (7)
  - ALCOHOLIC LIVER DISEASE [None]
  - ASTERIXIS [None]
  - ELECTROENCEPHALOGRAM ABNORMAL [None]
  - HYPERAMMONAEMIA [None]
  - HYPOAESTHESIA [None]
  - MUSCULOSKELETAL STIFFNESS [None]
  - SOMNOLENCE [None]
